FAERS Safety Report 20377847 (Version 1)
Quarter: 2022Q1

REPORT INFORMATION
  Report Type: Spontaneous
  Country: US (occurrence: US)
  Receive Date: 20220126
  Receipt Date: 20220126
  Transmission Date: 20220423
  Serious: Yes (Other)
  Sender: FDA-Public Use
  Company Number: US-REGENERON PHARMACEUTICALS, INC.-2022-14400

PATIENT

DRUGS (1)
  1. PRALUENT [Suspect]
     Active Substance: ALIROCUMAB
     Indication: Hypercholesterolaemia
     Dosage: 75 MG, Q2W
     Route: 058
     Dates: start: 2017

REACTIONS (7)
  - Myocardial infarction [Unknown]
  - Cerebrovascular accident [Unknown]
  - COVID-19 [Unknown]
  - Product dose omission issue [Unknown]
  - Product delivery mechanism issue [Unknown]
  - Product administered at inappropriate site [Unknown]
  - Product preparation error [Unknown]

NARRATIVE: CASE EVENT DATE: 20210101
